FAERS Safety Report 20619275 (Version 4)
Quarter: 2025Q2

REPORT INFORMATION
  Report Type: Spontaneous
  Country: EE (occurrence: EE)
  Receive Date: 20220322
  Receipt Date: 20250603
  Transmission Date: 20250717
  Serious: Yes (Other)
  Sender: EXELIXIS
  Company Number: EE-EXELIXIS-CABO-22050003

PATIENT
  Age: 58 Year
  Sex: Male

DRUGS (3)
  1. CABOMETYX [Suspect]
     Active Substance: CABOZANTINIB S-MALATE
     Indication: Renal disorder
     Dosage: 60 MG, QD
     Route: 065
     Dates: start: 20200512
  2. CABOMETYX [Suspect]
     Active Substance: CABOZANTINIB S-MALATE
     Indication: Clear cell renal cell carcinoma
     Dosage: 40 MG, QD
     Route: 065
     Dates: start: 20210105, end: 20211211
  3. CABOMETYX [Suspect]
     Active Substance: CABOZANTINIB S-MALATE
     Dosage: 40 MG, QD
     Route: 065
     Dates: start: 20220131, end: 202411

REACTIONS (10)
  - Postoperative ileus [Unknown]
  - Abscess intestinal [Recovered/Resolved]
  - Appendix disorder [Unknown]
  - Intestinal perforation [Recovered/Resolved]
  - Malignant neoplasm progression [Unknown]
  - Tumour haemorrhage [Unknown]
  - Bone lesion [Recovering/Resolving]
  - Diarrhoea [Unknown]
  - Nausea [Unknown]
  - Weight decreased [Unknown]

NARRATIVE: CASE EVENT DATE: 20201013
